FAERS Safety Report 9464606 (Version 1)
Quarter: 2013Q3

REPORT INFORMATION
  Report Type: Spontaneous
  Country: FR (occurrence: FR)
  Receive Date: 20130819
  Receipt Date: 20130819
  Transmission Date: 20140515
  Serious: Yes (Other)
  Sender: FDA-Public Use
  Company Number: FR-TEVA-425171ISR

PATIENT
  Sex: Female

DRUGS (4)
  1. COPAXONE [Suspect]
     Indication: MULTIPLE SCLEROSIS
     Dates: start: 2010, end: 2011
  2. COPAXONE [Suspect]
     Dates: start: 201306
  3. PROCUTA [Concomitant]
     Dates: start: 201306, end: 201307
  4. PROCUTA [Concomitant]
     Dates: start: 201307

REACTIONS (1)
  - Uterine cyst [Unknown]
